FAERS Safety Report 16697723 (Version 2)
Quarter: 2019Q3

REPORT INFORMATION
  Report Type: Report from Study
  Country: US (occurrence: US)
  Receive Date: 20190813
  Receipt Date: 20190819
  Transmission Date: 20191004
  Serious: Yes (Hospitalization, Other)
  Sender: FDA-Public Use
  Company Number: PHEH2019US033465

PATIENT
  Age: 83 Year
  Sex: Female
  Weight: 92.8 kg

DRUGS (2)
  1. GLEEVEC [Suspect]
     Active Substance: IMATINIB MESYLATE
     Dosage: 400 MG, QD
     Route: 048
  2. GLEEVEC [Suspect]
     Active Substance: IMATINIB MESYLATE
     Indication: GASTROINTESTINAL STROMAL TUMOUR
     Dosage: UNK
     Route: 065

REACTIONS (4)
  - Recurrent cancer [Unknown]
  - Pleural effusion [Unknown]
  - Gastrointestinal stromal tumour [Unknown]
  - Underweight [Unknown]

NARRATIVE: CASE EVENT DATE: 20190611
